FAERS Safety Report 21848345 (Version 2)
Quarter: 2023Q1

REPORT INFORMATION
  Report Type: Spontaneous
  Country: NL (occurrence: NL)
  Receive Date: 20230111
  Receipt Date: 20230117
  Transmission Date: 20230418
  Serious: Yes (Hospitalization, Other)
  Sender: FDA-Public Use
  Company Number: NL-BAYER-2023A001766

PATIENT
  Age: 50 Year
  Sex: Female

DRUGS (3)
  1. DROSPIRENONE\ETHINYL ESTRADIOL [Suspect]
     Active Substance: DROSPIRENONE\ETHINYL ESTRADIOL
     Indication: Oral contraception
     Dosage: 20 ?G/3 MG
     Route: 048
  2. EZETIMIBE [Concomitant]
     Active Substance: EZETIMIBE
  3. EZETIMIBE [Concomitant]
     Active Substance: EZETIMIBE
     Dosage: 10 MG, QD

REACTIONS (6)
  - Pancreatitis [Unknown]
  - Hypertriglyceridaemia [Recovering/Resolving]
  - Anuria [None]
  - Hypotension [None]
  - Pneumonia klebsiella [None]
  - Blood triglycerides increased [None]
